FAERS Safety Report 24367673 (Version 1)
Quarter: 2024Q3

REPORT INFORMATION
  Report Type: Report from Study
  Country: ZA (occurrence: ZA)
  Receive Date: 20240926
  Receipt Date: 20240926
  Transmission Date: 20241017
  Serious: Yes (Hospitalization)
  Sender: ABBVIE
  Company Number: ZA-ABBOTT-2024A-1388495

PATIENT
  Age: 57 Year
  Sex: Female

DRUGS (19)
  1. CREON [Suspect]
     Active Substance: PANCRELIPASE AMYLASE\PANCRELIPASE LIPASE\PANCRELIPASE PROTEASE
     Indication: Pancreatic failure
     Dosage: TIME INTERVAL: 0.33333333 DAYS: 150 MG TAKE ONE CAPSULE THREE TIMES A DAY?1000
     Route: 048
  2. DULOXETINE HYDROCHLORIDE [Concomitant]
     Active Substance: DULOXETINE HYDROCHLORIDE
     Indication: Depression
     Dosage: 60 MG TAKE ONE CAPSULE IN THE MORNINGS
     Route: 048
  3. Sinuclear [Concomitant]
     Indication: Product used for unknown indication
     Dosage: AS PER PACKAGE INSERT
     Route: 048
  4. PROTOPIC [Concomitant]
     Active Substance: TACROLIMUS
     Indication: Product used for unknown indication
     Dosage: 0.1 % AS DIRECTED APPLY EVERYDAY
     Route: 061
  5. AZITHROMYCIN [Concomitant]
     Active Substance: AZITHROMYCIN
     Indication: Product used for unknown indication
     Dosage: 500 MG TAKE ONE TABLET ONCE A DAY
     Route: 048
  6. AMITRIPTYLINE [Concomitant]
     Active Substance: AMITRIPTYLINE
     Indication: Depression
     Dosage: 25 MG TAKE ONE TABLET AT NIGHT
     Route: 048
  7. Rupallerg [Concomitant]
     Indication: Hypersensitivity
     Dosage: 10 MG TAKE ONE TABLET ONCE A DAY
     Route: 048
  8. Pantocid [Concomitant]
     Indication: Ulcer
     Dosage: 40 MG TAKE ONE TABLET ONCE A DAY
     Route: 048
  9. PREGABALIN [Concomitant]
     Active Substance: PREGABALIN
     Indication: Epilepsy
     Dosage: 75 MG TAKE ONE CAPSULE TWICE A DAY
     Route: 048
  10. PREGABALIN [Concomitant]
     Active Substance: PREGABALIN
     Indication: Epilepsy
     Dosage: 25 MG TAKE ONE CAPSULE TWICE A DAY
     Route: 048
  11. LEVOTHYROXINE [Concomitant]
     Active Substance: LEVOTHYROXINE\LEVOTHYROXINE SODIUM
     Indication: Hypothyroidism
     Dosage: 25 MCG TAKE ONE TABLET IN THE MORNINGS
     Route: 048
  12. ILIADIN [Concomitant]
     Indication: Product used for unknown indication
     Dosage: 0.5 MG AS PER PACKAGE INSERT?METER ADULT
     Route: 045
  13. SUDAFED SINUS PAIN [Concomitant]
     Indication: Product used for unknown indication
     Dosage: TAKE ONE TABLET TWICE A DAY
     Route: 048
  14. DUPHALAC [Suspect]
     Active Substance: LACTULOSE
     Indication: Product used for unknown indication
     Dosage: 10 G ONE SACHET DISSOLVED IN WATER ONCE A DAY
     Route: 048
  15. NEUROBION [Concomitant]
     Active Substance: CYANOCOBALAMIN\PYRIDOXINE\THIAMINE
     Indication: Product used for unknown indication
     Dosage: TAKE ONE TABLET ONCE A DAY
     Route: 048
  16. Stopayne [Concomitant]
     Indication: Pain
     Dosage: TAKE TWO TABLETS THREE TIMES A DAY
     Route: 048
  17. STOPITCH [Concomitant]
     Indication: Product used for unknown indication
     Dosage: 1 G AS PER PACKAGE INSERT
     Route: 061
  18. FOSFOMYCIN TROMETHAMINE [Concomitant]
     Active Substance: FOSFOMYCIN TROMETHAMINE
     Indication: Product used for unknown indication
     Dosage: 3 G ONE SACHET DISSOLVED IN WATER AT ONCE
     Route: 048
  19. ACETYLCYSTEINE [Concomitant]
     Active Substance: ACETYLCYSTEINE
     Indication: Product used for unknown indication
     Dosage: 200 MG AS PER PACKAGE INSERT
     Route: 048

REACTIONS (2)
  - Mechanical ventilation [Unknown]
  - Hospitalisation [Unknown]
